FAERS Safety Report 20240038 (Version 1)
Quarter: 2021Q4

REPORT INFORMATION
  Report Type: Spontaneous
  Country: JP (occurrence: JP)
  Receive Date: 20211228
  Receipt Date: 20211228
  Transmission Date: 20220303
  Serious: Yes (Hospitalization, Other)
  Sender: FDA-Public Use
  Company Number: JP-GILEAD-2021-0563044

PATIENT
  Age: 43 Year
  Sex: Female
  Weight: 110 kg

DRUGS (1)
  1. VEMLIDY [Suspect]
     Active Substance: TENOFOVIR ALAFENAMIDE FUMARATE
     Indication: Hepatitis B
     Dosage: 25 MG
     Route: 048
     Dates: start: 201901

REACTIONS (2)
  - Autoimmune hepatitis [Unknown]
  - Hepatitis B DNA increased [Unknown]
